FAERS Safety Report 8197404-0 (Version None)
Quarter: 2012Q1

REPORT INFORMATION
  Report Type: 
  Country: None (occurrence: None)
  Receive Date: 20120309
  Receipt Date: 20120302
  Transmission Date: 20120608
  Serious: Yes (Hospitalization)
  Sender: FDA-Public Use
  Company Number: ZA-FRI-1000028444

PATIENT
  Sex: Male

DRUGS (6)
  1. ADCO-AMOCLAV [Concomitant]
     Indication: SINUSITIS
     Dosage: 2 DOSAGE FORMS
     Route: 048
     Dates: start: 20110902, end: 20110907
  2. FOSFOMYCIN [Suspect]
     Indication: URINARY TRACT INFECTION
     Route: 048
     Dates: start: 20110923, end: 20110923
  3. ZETOMAX [Concomitant]
     Indication: HYPERTENSION
     Dosage: 10 MG
     Route: 048
     Dates: start: 20041028
  4. ALTOSEC [Concomitant]
     Indication: GASTRITIS
     Dosage: 20 MG
     Route: 048
     Dates: start: 20110922, end: 20110923
  5. ACETYLCYSTEINE [Concomitant]
     Indication: SINUSITIS
     Dosage: 600 MG
     Route: 048
     Dates: start: 20110913, end: 20110918
  6. KETEK [Concomitant]
     Indication: SINUSITIS
     Dosage: 800 MG
     Route: 048
     Dates: start: 20110913, end: 20110918

REACTIONS (3)
  - PYELONEPHRITIS [None]
  - HEPATITIS TOXIC [None]
  - OFF LABEL USE [None]
